FAERS Safety Report 11311564 (Version 1)
Quarter: 2015Q3

REPORT INFORMATION
  Report Type: Spontaneous
  Country: US (occurrence: US)
  Receive Date: 20150727
  Receipt Date: 20150727
  Transmission Date: 20151125
  Serious: No
  Sender: FDA-Public Use
  Company Number: US-009507513-1507USA010907

PATIENT
  Age: 36 Year
  Sex: Female
  Weight: 44.44 kg

DRUGS (1)
  1. NEXPLANON [Suspect]
     Active Substance: ETONOGESTREL
     Indication: CONTRACEPTION
     Dosage: UNK
     Dates: start: 20130401

REACTIONS (3)
  - Incorrect drug administration duration [Unknown]
  - Weight decreased [Unknown]
  - Medical device complication [Unknown]

NARRATIVE: CASE EVENT DATE: 20130401
